FAERS Safety Report 10528812 (Version 2)
Quarter: 2015Q3

REPORT INFORMATION
  Report Type: Other
  Country: DE (occurrence: DE)
  Receive Date: 20141020
  Receipt Date: 20150901
  Transmission Date: 20151125
  Serious: Yes (Other)
  Sender: FDA-Public Use
  Company Number: DE-NOVEN-14DE010602

PATIENT
  Sex: Male
  Weight: 3.79 kg

DRUGS (9)
  1. PAROXETINE [Suspect]
     Active Substance: PAROXETINE\PAROXETINE HYDROCHLORIDE
     Indication: ANXIETY DISORDER
     Dosage: 20 MG, QD / GW 0-5 20 MG/D, STARTED AGAIN GW 12.5 (0.-23.6 GW)
     Route: 064
     Dates: start: 20130604, end: 20131118
  2. FOLIC ACID. [Concomitant]
     Active Substance: FOLIC ACID
     Indication: PRODUCT USED FOR UNKNOWN INDICATION
     Dosage: UNK
     Dates: start: 20130703, end: 20140315
  3. ZYPREXA [Suspect]
     Active Substance: OLANZAPINE
     Indication: ANXIETY DISORDER
     Dosage: 10 MG, QD (33.3-40.4 GESTATIONAL WEEK);
     Route: 064
     Dates: start: 20140124, end: 20140315
  4. RISPERDAL [Concomitant]
     Active Substance: RISPERIDONE
     Indication: PRODUCT USED FOR UNKNOWN INDICATION
     Dosage: UNK
     Dates: start: 20131031, end: 20140123
  5. AMITRIPTYLIN [Concomitant]
     Active Substance: AMITRIPTYLINE
     Indication: PRODUCT USED FOR UNKNOWN INDICATION
     Dosage: UNK
     Dates: start: 20131119, end: 20131220
  6. TREVILOR RETARD [Suspect]
     Active Substance: VENLAFAXINE HYDROCHLORIDE
     Indication: ANXIETY DISORDER
     Dosage: 450 MG, DAILY (33.3-40.4 GESTATIONAL WEEK; UNKNOWN IF DOSE WAS SEPARATED
     Route: 064
     Dates: start: 20140124, end: 20140315
  7. DIAZEPAM. [Concomitant]
     Active Substance: DIAZEPAM
     Indication: PRODUCT USED FOR UNKNOWN INDICATION
     Dosage: UNK
     Dates: start: 20131122, end: 20131224
  8. SEROQUEL [Concomitant]
     Active Substance: QUETIAPINE FUMARATE
     Indication: PRODUCT USED FOR UNKNOWN INDICATION
     Dosage: UNK
     Dates: start: 20131220, end: 20131224
  9. CITALOPRAM [Concomitant]
     Active Substance: CITALOPRAM HYDROBROMIDE
     Indication: PRODUCT USED FOR UNKNOWN INDICATION
     Dosage: UNK
     Dates: start: 20131220, end: 20140123

REACTIONS (5)
  - Restlessness [Unknown]
  - Agitation neonatal [Unknown]
  - Drug withdrawal syndrome neonatal [Unknown]
  - Haemangioma congenital [Unknown]
  - Oxygen saturation abnormal [Unknown]
